FAERS Safety Report 9237934 (Version 1)
Quarter: 2013Q1

REPORT INFORMATION
  Report Type: Spontaneous
  Country: US (occurrence: None)
  Receive Date: 20121106
  Receipt Date: 20121106
  Transmission Date: 20140127
  Serious: No
  Sender: FDA-Public Use
  Company Number: 1000038570

PATIENT
  Age: 72 Year
  Sex: Female

DRUGS (2)
  1. DALIRESP [Suspect]
     Indication: CHRONIC OBSTRUCTIVE PULMONARY DISEASE
     Route: 048
     Dates: start: 20120901, end: 20120902
  2. PREDNISONE(PREDNISONE) (PREDNISONE) [Concomitant]

REACTIONS (1)
  - Blood glucose increased [None]
